FAERS Safety Report 15283799 (Version 1)
Quarter: 2018Q3

REPORT INFORMATION
  Report Type: Spontaneous
  Country: US (occurrence: US)
  Receive Date: 20180801
  Receipt Date: 20180801
  Transmission Date: 20181010
  Serious: Yes (Other)
  Sender: FDA-Public Use
  Company Number: None

PATIENT
  Age: 65 Year
  Sex: Female
  Weight: 77.11 kg

DRUGS (3)
  1. CORTIA XT [Concomitant]
  2. VALSARTAN GENERIC FOR DIOVAN [Suspect]
     Active Substance: VALSARTAN
     Indication: HYPERTENSION
     Dosage: ?          QUANTITY:1 DF DOSAGE FORM;?
     Route: 048
  3. TOPROL XL [Concomitant]
     Active Substance: METOPROLOL SUCCINATE

REACTIONS (5)
  - Anion gap increased [None]
  - Gastric disorder [None]
  - Malaise [None]
  - Gastrointestinal disorder [None]
  - Product substitution issue [None]
